FAERS Safety Report 15304771 (Version 1)
Quarter: 2018Q3

REPORT INFORMATION
  Report Type: Spontaneous
  Country: US (occurrence: US)
  Receive Date: 20180809
  Receipt Date: 20180809
  Transmission Date: 20181010
  Serious: Yes (Other)
  Sender: FDA-Public Use
  Company Number: None

PATIENT
  Age: 87 Year
  Sex: Male
  Weight: 88 kg

DRUGS (1)
  1. ISOSORBIDE MONONITRATE EXTENDED RELEASE [Suspect]
     Active Substance: ISOSORBIDE MONONITRATE
     Indication: CHEST PAIN
     Route: 048
     Dates: start: 20180808

REACTIONS (1)
  - Dizziness [None]

NARRATIVE: CASE EVENT DATE: 20180808
